FAERS Safety Report 16979696 (Version 2)
Quarter: 2019Q4

REPORT INFORMATION
  Report Type: Spontaneous
  Country: ID (occurrence: ID)
  Receive Date: 20191031
  Receipt Date: 20191126
  Transmission Date: 20200122
  Serious: Yes (Other)
  Sender: FDA-Public Use
  Company Number: ID-ASTRAZENECA-2019SF53402

PATIENT
  Age: 46 Year
  Sex: Male
  Weight: 80 kg

DRUGS (6)
  1. NEBIVOLOL. [Concomitant]
     Active Substance: NEBIVOLOL
  2. BRILINTA [Suspect]
     Active Substance: TICAGRELOR
     Indication: PERCUTANEOUS CORONARY INTERVENTION
     Route: 048
  3. CANDESARTAN. [Concomitant]
     Active Substance: CANDESARTAN
  4. BRILINTA [Suspect]
     Active Substance: TICAGRELOR
     Indication: PERCUTANEOUS CORONARY INTERVENTION
     Route: 048
  5. ROSUVASTATIN. [Concomitant]
     Active Substance: ROSUVASTATIN
  6. ASPILET [Concomitant]
     Active Substance: ASPIRIN
     Indication: ANTIPLATELET THERAPY

REACTIONS (2)
  - Urogenital haemorrhage [Recovered/Resolved]
  - Gingival bleeding [Recovered/Resolved]
